FAERS Safety Report 8770606 (Version 1)
Quarter: 2012Q4

REPORT INFORMATION
  Report Type: 
  Country: US (occurrence: US)
  Receive Date: 20120906
  Receipt Date: 20120906
  Transmission Date: 20130627
  Serious: No
  Sender: FDA-Public Use
  Company Number: US-BAYER-2012-092309

PATIENT
  Age: 25 Year
  Sex: Female
  Weight: 112 kg

DRUGS (7)
  1. ALEVE CAPLET/TABLET,MIDOL EXTENDED RELIEF CAPLET [Suspect]
     Indication: DYSMENORRHOEA
     Dosage: 2 DF, QD
     Route: 048
     Dates: start: 2005
  2. HALOPERIDOL [Concomitant]
  3. AMBIEN [Concomitant]
  4. TRAZODONE [Concomitant]
  5. GEODON [Concomitant]
  6. TEGRETOL [Concomitant]
  7. ATIVAN [Concomitant]

REACTIONS (1)
  - Therapeutic response unexpected [None]
